FAERS Safety Report 25640655 (Version 2)
Quarter: 2025Q3

REPORT INFORMATION
  Report Type: Report from Study
  Country: CA (occurrence: CA)
  Receive Date: 20250804
  Receipt Date: 20250812
  Transmission Date: 20251021
  Serious: Yes (Hospitalization)
  Sender: BRISTOL-MYERS SQUIBB COMPANY
  Company Number: CA-BRISTOL-MYERS SQUIBB COMPANY-2025-106286

PATIENT
  Age: 87 Year
  Sex: Male

DRUGS (2)
  1. ORENCIA [Suspect]
     Active Substance: ABATACEPT
     Indication: Rheumatoid arthritis
     Dosage: 750 MG INTRAVENOUS EVERY 4 WEEK(S) - MAINTENANCE
     Route: 042
     Dates: start: 20120327, end: 20250626
  2. METHOTREXATE SODIUM [Concomitant]
     Active Substance: METHOTREXATE SODIUM
     Indication: Product used for unknown indication
     Dates: start: 20060601

REACTIONS (5)
  - Gastrointestinal disorder [Unknown]
  - Fatigue [Not Recovered/Not Resolved]
  - Pollakiuria [Unknown]
  - Penile pain [Unknown]
  - Urinary tract infection [Unknown]

NARRATIVE: CASE EVENT DATE: 20250101
